FAERS Safety Report 13646006 (Version 3)
Quarter: 2017Q4

REPORT INFORMATION
  Report Type: Report from Study
  Country: CA (occurrence: CA)
  Receive Date: 20170613
  Receipt Date: 20171114
  Transmission Date: 20180320
  Serious: Yes (Other)
  Sender: FDA-Public Use
  Company Number: CA-ROCHE-1944500

PATIENT
  Sex: Female

DRUGS (3)
  1. LYRICA [Concomitant]
     Active Substance: PREGABALIN
  2. AVASTIN [Suspect]
     Active Substance: BEVACIZUMAB
     Indication: SCAR
     Route: 050
     Dates: start: 201601
  3. ACLASTA [Concomitant]
     Active Substance: ZOLEDRONIC ACID

REACTIONS (5)
  - Off label use [Unknown]
  - Abdominal pain upper [Unknown]
  - Intentional product use issue [Unknown]
  - Ascites [Unknown]
  - Abdominal distension [Unknown]

NARRATIVE: CASE EVENT DATE: 2017
